FAERS Safety Report 11118948 (Version 1)
Quarter: 2015Q2

REPORT INFORMATION
  Report Type: Spontaneous
  Country: US (occurrence: US)
  Receive Date: 20150518
  Receipt Date: 20150518
  Transmission Date: 20150821
  Serious: No
  Sender: FDA-Public Use
  Company Number: US-009507513-1505USA003495

PATIENT
  Age: 39 Year
  Sex: Female
  Weight: 60.77 kg

DRUGS (1)
  1. NEXPLANON [Suspect]
     Active Substance: ETONOGESTREL
     Dosage: DOSE: 68 MG, FREQUENCY UNKNOWN
     Route: 059
     Dates: start: 20150501

REACTIONS (1)
  - Neck pain [Unknown]

NARRATIVE: CASE EVENT DATE: 201505
